FAERS Safety Report 9626709 (Version 2)
Quarter: 2013Q4

REPORT INFORMATION
  Report Type: Spontaneous
  Country: US (occurrence: US)
  Receive Date: 20131016
  Receipt Date: 20131016
  Transmission Date: 20140711
  Serious: Yes (Other)
  Sender: FDA-Public Use
  Company Number: US-ELI_LILLY_AND_COMPANY-US201307004582

PATIENT
  Age: 84 Year
  Sex: Female

DRUGS (8)
  1. EFFIENT [Suspect]
     Indication: STENT PLACEMENT
     Dosage: 10 MG, QD
  2. EFFIENT [Suspect]
     Dosage: 5 MG, QD
  3. AMLODIPINE [Concomitant]
     Route: 065
  4. ATORVASTATIN [Concomitant]
  5. LEVOTHYROXINE [Concomitant]
  6. METOPROLOL SUCCINATE [Concomitant]
  7. VERAPAMIL [Concomitant]
  8. ESOMEPRAZOLE [Concomitant]

REACTIONS (16)
  - Blister [Recovered/Resolved]
  - Pruritus [Recovered/Resolved]
  - Urticaria [Recovered/Resolved]
  - Medication error [Unknown]
  - Dizziness [Unknown]
  - Nausea [Unknown]
  - Tremor [Unknown]
  - Dyspnoea [Unknown]
  - Visual acuity reduced [Unknown]
  - Blood pressure increased [Unknown]
  - Asthenia [Unknown]
  - Fatigue [Unknown]
  - Depression [Unknown]
  - Anger [Unknown]
  - Arthralgia [Unknown]
  - Rash [Recovered/Resolved]
